FAERS Safety Report 6348679-1 (Version None)
Quarter: 2009Q3

REPORT INFORMATION
  Report Type: 
  Country: None (occurrence: None)
  Receive Date: 20090911
  Receipt Date: 20090818
  Transmission Date: 20100115
  Serious: Yes (Other)
  Sender: FDA-Public Use
  Company Number: KR-PFIZER INC-2009258830

PATIENT

DRUGS (3)
  1. LIPITOR [Suspect]
     Dosage: UNK
     Route: 048
     Dates: start: 19990101
  2. CADUET [Suspect]
     Route: 048
  3. NORVASC [Suspect]
     Dosage: UNK
     Route: 048
     Dates: start: 19990101

REACTIONS (3)
  - EJECTION FRACTION DECREASED [None]
  - MUSCLE ENZYME INCREASED [None]
  - MUSCULOSKELETAL CHEST PAIN [None]
